APPROVED DRUG PRODUCT: METHYLDOPA AND HYDROCHLOROTHIAZIDE
Active Ingredient: HYDROCHLOROTHIAZIDE; METHYLDOPA
Strength: 30MG;500MG
Dosage Form/Route: TABLET;ORAL
Application: A071460 | Product #001
Applicant: IVAX PHARMACEUTICALS INC SUB TEVA PHARMACEUTICALS USA
Approved: Mar 8, 1988 | RLD: No | RS: No | Type: DISCN